FAERS Safety Report 15755166 (Version 1)
Quarter: 2018Q4

REPORT INFORMATION
  Report Type: Spontaneous
  Country: US (occurrence: US)
  Receive Date: 20181221
  Receipt Date: 20181221
  Transmission Date: 20190205
  Serious: Yes (Other)
  Sender: FDA-Public Use
  Company Number: None

PATIENT
  Age: 51 Year
  Sex: Male
  Weight: 117 kg

DRUGS (5)
  1. CLONAPIN [Concomitant]
     Active Substance: CLONAZEPAM
  2. AIMOVIG [Suspect]
     Active Substance: ERENUMAB-AOOE
     Indication: MIGRAINE
     Dosage: ?          QUANTITY:1 INJECTION(S);OTHER FREQUENCY:MONTHLY;?
     Route: 030
     Dates: start: 20181217, end: 20181217
  3. IMATREX [Concomitant]
  4. KADIAN [Concomitant]
     Active Substance: MORPHINE SULFATE
  5. PRESTIQE [Concomitant]

REACTIONS (8)
  - Joint swelling [None]
  - Insomnia [None]
  - Eye irritation [None]
  - Drug ineffective [None]
  - Pain [None]
  - Dizziness [None]
  - Headache [None]
  - Confusional state [None]

NARRATIVE: CASE EVENT DATE: 20181217
